FAERS Safety Report 4291139-2 (Version None)
Quarter: 2004Q1

REPORT INFORMATION
  Report Type: 
  Country: None (occurrence: None)
  Receive Date: 20040211
  Receipt Date: 20031104
  Transmission Date: 20041129
  Serious: No
  Sender: FDA-Public Use
  Company Number: US-GLAXOSMITHKLINE-A0432874A

PATIENT
  Sex: Female

DRUGS (5)
  1. PAXIL [Suspect]
     Indication: DEPRESSION
     Dosage: 20MG PER DAY
     Route: 048
  2. ATACAND [Concomitant]
  3. CLARITIN [Concomitant]
  4. MULTI-VITAMIN [Concomitant]
  5. CALCIUM [Concomitant]

REACTIONS (2)
  - DIARRHOEA [None]
  - DRUG WITHDRAWAL SYNDROME [None]
